FAERS Safety Report 7484047-7 (Version None)
Quarter: 2011Q2

REPORT INFORMATION
  Report Type: 
  Country: None (occurrence: None)
  Receive Date: 20110517
  Receipt Date: 20110511
  Transmission Date: 20111010
  Serious: Yes (Other)
  Sender: FDA-Public Use
  Company Number: US-PFIZER INC-2011098937

PATIENT
  Sex: Male

DRUGS (4)
  1. ACTOS [Concomitant]
  2. SUTENT [Suspect]
     Dosage: 50 MG ALTERNATING WITH 25 MG DAILY, X 4 WEEKS
     Dates: start: 20110314
  3. SUTENT [Suspect]
     Dosage: 50 MG, 1X/DAY
     Dates: start: 20110425
  4. GLYBURIDE [Concomitant]

REACTIONS (2)
  - WEIGHT DECREASED [None]
  - HAEMORRHOIDAL HAEMORRHAGE [None]
